FAERS Safety Report 9577373 (Version 1)
Quarter: 2013Q4

REPORT INFORMATION
  Report Type: Spontaneous
  Country: US (occurrence: US)
  Receive Date: 20131001
  Receipt Date: 20131001
  Transmission Date: 20140711
  Serious: No
  Sender: FDA-Public Use
  Company Number: US-AMGEN-USASP2013007371

PATIENT
  Age: 19 Year
  Sex: Female
  Weight: 87.53 kg

DRUGS (4)
  1. ENBREL [Suspect]
     Indication: PSORIASIS
     Dosage: 50 MG, QWK
     Route: 058
     Dates: start: 2008, end: 2010
  2. CITALOPRAM [Concomitant]
     Dosage: UNK
  3. SPRINTEC [Concomitant]
     Dosage: UNK
  4. METHOTREXATE [Concomitant]
     Dosage: UNK

REACTIONS (2)
  - Injection site swelling [Unknown]
  - Injection site bruising [Unknown]
